FAERS Safety Report 26151476 (Version 1)
Quarter: 2025Q4

REPORT INFORMATION
  Report Type: Spontaneous
  Country: US (occurrence: US)
  Receive Date: 20251212
  Receipt Date: 20251212
  Transmission Date: 20260117
  Serious: Yes (Life-Threatening, Hospitalization, Other)
  Sender: PFIZER
  Company Number: US-PFIZER INC-PV202500144605

PATIENT
  Age: 34 Year
  Sex: Male

DRUGS (2)
  1. FENTANYL CITRATE [Suspect]
     Active Substance: FENTANYL CITRATE
     Dosage: UNK
  2. COCAINE [Suspect]
     Active Substance: COCAINE
     Dosage: UNK

REACTIONS (5)
  - Toxicity to various agents [Recovering/Resolving]
  - Pneumonitis chemical [Recovering/Resolving]
  - Hypovolaemic shock [Recovering/Resolving]
  - Rhabdomyolysis [Recovering/Resolving]
  - Respiratory depression [Recovering/Resolving]
